FAERS Safety Report 9176133 (Version 3)
Quarter: 2013Q1

REPORT INFORMATION
  Report Type: Spontaneous
  Country: US (occurrence: US)
  Receive Date: 20120924
  Receipt Date: 20130328
  Transmission Date: 20140127
  Serious: Yes (Hospitalization, Other)
  Sender: FDA-Public Use
  Company Number: US-RB-044507-12

PATIENT
  Age: 0 None
  Sex: Female

DRUGS (4)
  1. SUBUTEX [Suspect]
     Indication: DRUG DEPENDENCE
     Dosage: DOSING DETAILS UNKNOWN; BUYING OFF THE STREET
     Route: 064
  2. SUBUTEX [Suspect]
     Dosage: PRESCRIBED
     Route: 064
     Dates: start: 201108, end: 20121230
  3. SUBUTEX [Suspect]
     Route: 063
     Dates: start: 20111230, end: 201201
  4. SUBOXONE FILM [Suspect]
     Indication: DRUG DEPENDENCE
     Dosage: SUBOXONE FILM; MOTHER BUYING OFF THE STREET, DOSING DETAILS UNKNOWN
     Route: 064

REACTIONS (4)
  - Foetal exposure during pregnancy [Recovered/Resolved]
  - Drug withdrawal syndrome neonatal [Recovered/Resolved]
  - Neonatal aspiration [Recovered/Resolved]
  - Exposure during breast feeding [Recovered/Resolved]
